FAERS Safety Report 15044935 (Version 2)
Quarter: 2018Q2

REPORT INFORMATION
  Report Type: Report from Study
  Country: DE (occurrence: DE)
  Receive Date: 20180621
  Receipt Date: 20180628
  Transmission Date: 20180711
  Serious: Yes (Other)
  Sender: FDA-Public Use
  Company Number: DE-PFIZER INC-2018247504

PATIENT
  Age: 15 Year
  Sex: Male

DRUGS (7)
  1. TRIAMTERENE. [Suspect]
     Active Substance: TRIAMTERENE
     Dosage: 25 MG, UNK
     Route: 048
  2. SORAFENIB [Suspect]
     Active Substance: SORAFENIB
     Indication: EWING^S SARCOMA
     Dosage: DAILY DOSE 400 MG
     Route: 048
  3. ARSENIC TRIOXIDE [Suspect]
     Active Substance: ARSENIC TRIOXIDE
     Dosage: 0.1 MG/KG, UNK
     Route: 048
  4. PACLITAXEL. [Suspect]
     Active Substance: PACLITAXEL
     Dosage: DAILY DOSE 200 MG/M2
     Route: 042
  5. VITAMIN E [Suspect]
     Active Substance: .ALPHA.-TOCOPHEROL
     Dosage: 400 UNK, UNK
  6. TRETINOIN. [Suspect]
     Active Substance: TRETINOIN
     Dosage: 25 MG/M2, UNK
     Route: 048
  7. VORINOSTAT [Suspect]
     Active Substance: VORINOSTAT
     Dosage: DAILY DOSE 300 MG
     Route: 048

REACTIONS (7)
  - Anaemia [Unknown]
  - Bone pain [Unknown]
  - Activated partial thromboplastin time prolonged [Unknown]
  - Lymphopenia [Unknown]
  - Pneumonia [Unknown]
  - Thrombocytopenia [Unknown]
  - Dyspnoea [Unknown]
